FAERS Safety Report 24921834 (Version 1)
Quarter: 2025Q1

REPORT INFORMATION
  Report Type: Report from Study
  Country: DE (occurrence: DE)
  Receive Date: 20250204
  Receipt Date: 20250204
  Transmission Date: 20250408
  Serious: Yes (Hospitalization)
  Sender: ACCORD
  Company Number: None

PATIENT
  Sex: Female

DRUGS (6)
  1. METHOTREXATE SODIUM [Suspect]
     Active Substance: METHOTREXATE SODIUM
     Indication: Axial spondyloarthritis
     Dates: start: 20190628, end: 20190628
  2. CELECOXIB [Suspect]
     Active Substance: CELECOXIB
     Indication: Axial spondyloarthritis
     Dates: start: 20210624
  3. SECUKINUMAB [Suspect]
     Active Substance: SECUKINUMAB
     Indication: Axial spondyloarthritis
  4. IBUPROFEN [Suspect]
     Active Substance: IBUPROFEN
     Indication: Axial spondyloarthritis
     Dates: start: 20131115, end: 20190715
  5. NAPROXEN [Suspect]
     Active Substance: NAPROXEN
     Indication: Axial spondyloarthritis
     Dates: start: 20201017, end: 20201115
  6. IBUPROFEN [Suspect]
     Active Substance: IBUPROFEN
     Indication: Axial spondyloarthritis
     Dates: start: 20191011, end: 20201015

REACTIONS (3)
  - Depression [Unknown]
  - Generalised anxiety disorder [Unknown]
  - Obsessive-compulsive disorder [Unknown]

NARRATIVE: CASE EVENT DATE: 20200715
